FAERS Safety Report 14933176 (Version 1)
Quarter: 2018Q2

REPORT INFORMATION
  Report Type: Spontaneous
  Country: US (occurrence: US)
  Receive Date: 20180504
  Receipt Date: 20180504
  Transmission Date: 20180711
  Serious: No
  Sender: FDA-Public Use
  Company Number: None

PATIENT
  Sex: Female
  Weight: 67.59 kg

DRUGS (2)
  1. METHOTREXATE UNKNOWN GENERIC [Suspect]
     Active Substance: METHOTREXATE
     Indication: RHEUMATOID ARTHRITIS
  2. ACETAMINOPHEN UNKNWON GENERIC [Suspect]
     Active Substance: ACETAMINOPHEN
     Indication: RHEUMATOID ARTHRITIS

REACTIONS (2)
  - Suicidal ideation [None]
  - Peripheral swelling [None]
